FAERS Safety Report 4775653-9 (Version None)
Quarter: 2005Q3

REPORT INFORMATION
  Report Type: 
  Country: None (occurrence: None)
  Receive Date: 20050920
  Receipt Date: 20050920
  Transmission Date: 20060218
  Serious: Yes (Hospitalization)
  Sender: FDA-Public Use
  Company Number: None

PATIENT
  Age: 45 Year
  Sex: Male
  Weight: 87.0906 kg

DRUGS (7)
  1. AMITRIPTYLINE 25MG -UDL LABELER [Suspect]
     Indication: PAIN
     Dosage: 25 MG PO AM
     Route: 048
     Dates: start: 20050724, end: 20050725
  2. AMITRIPTYLINE 75MG -UDL LABELER [Suspect]
     Dosage: 75 MG PO PM
     Route: 048
     Dates: start: 20050724, end: 20050725
  3. PLAVIX [Concomitant]
  4. NEURONTIN [Concomitant]
  5. LEXAPRO [Concomitant]
  6. FOLIC ACID [Concomitant]
  7. RISPERDAL [Concomitant]

REACTIONS (4)
  - CONFUSIONAL STATE [None]
  - DYSKINESIA [None]
  - METABOLIC ENCEPHALOPATHY [None]
  - SOMNOLENCE [None]
